FAERS Safety Report 17288064 (Version 1)
Quarter: 2020Q1

REPORT INFORMATION
  Report Type: Spontaneous
  Country: PL (occurrence: PL)
  Receive Date: 20200120
  Receipt Date: 20200120
  Transmission Date: 20200409
  Serious: Yes (Death, Other)
  Sender: FDA-Public Use
  Company Number: PL-ACCORD-170137

PATIENT
  Age: 48 Year
  Sex: Female
  Weight: 97 kg

DRUGS (3)
  1. CETUXIMAB. [Concomitant]
     Active Substance: CETUXIMAB
  2. FLUOROURACIL ACCORD [Suspect]
     Active Substance: FLUOROURACIL
     Indication: COLON CANCER
     Dosage: SECOND DAY OF TREATMENT, 8TH CYCLE OF CHEMOTHERAPY
     Dates: start: 20191211
  3. IRINOTECAN [Concomitant]
     Active Substance: IRINOTECAN

REACTIONS (2)
  - Cardiac arrest [Fatal]
  - Syncope [Not Recovered/Not Resolved]

NARRATIVE: CASE EVENT DATE: 20191211
